FAERS Safety Report 11667617 (Version 2)
Quarter: 2015Q4

REPORT INFORMATION
  Report Type: Spontaneous
  Country: US (occurrence: None)
  Receive Date: 20151027
  Receipt Date: 20151028
  Transmission Date: 20160304
  Serious: Yes (Other)
  Sender: FDA-Public Use
  Company Number: ADR-2014-02330

PATIENT
  Age: 60 Year
  Sex: Male

DRUGS (2)
  1. BACLOFEN INTRATHECAL [Suspect]
     Active Substance: BACLOFEN
     Indication: PAIN
  2. HYDROMORPHONE INTRATHECAL (15 MG/ML) [Suspect]
     Active Substance: HYDROMORPHONE
     Dosage: 3.994 MG/DAY

REACTIONS (2)
  - Influenza like illness [None]
  - Malaise [None]
